FAERS Safety Report 11980808 (Version 1)
Quarter: 2016Q1

REPORT INFORMATION
  Report Type: Spontaneous
  Country: US (occurrence: US)
  Receive Date: 20160129
  Receipt Date: 20160129
  Transmission Date: 20160526
  Serious: Yes (Other)
  Sender: FDA-Public Use
  Company Number: US-FRESENIUS KABI-FK201600443

PATIENT

DRUGS (5)
  1. METHOTREXATE [Suspect]
     Active Substance: METHOTREXATE
     Indication: METASTATIC CARCINOMA OF THE BLADDER
     Route: 065
  2. GEMCITABINE [Suspect]
     Active Substance: GEMCITABINE\GEMCITABINE HYDROCHLORIDE
     Indication: METASTATIC CARCINOMA OF THE BLADDER
     Route: 065
  3. DOXORUBICIN HYDROCHLORIDE INJECTION, USP [Suspect]
     Active Substance: DOXORUBICIN HYDROCHLORIDE
     Indication: METASTATIC CARCINOMA OF THE BLADDER
     Route: 065
  4. VINBLASTINE SULFATE INJECTION [Suspect]
     Active Substance: VINBLASTINE SULFATE
     Indication: METASTATIC CARCINOMA OF THE BLADDER
     Route: 065
  5. CISPLATIN KABI [Suspect]
     Active Substance: CISPLATIN
     Indication: METASTATIC CARCINOMA OF THE BLADDER
     Route: 065

REACTIONS (1)
  - Disease progression [Unknown]
